FAERS Safety Report 19108516 (Version 4)
Quarter: 2021Q3

REPORT INFORMATION
  Report Type: Spontaneous
  Country: US (occurrence: US)
  Receive Date: 20210408
  Receipt Date: 20210902
  Transmission Date: 20211014
  Serious: Yes (Hospitalization, Other)
  Sender: FDA-Public Use
  Company Number: US-GLAXOSMITHKLINE-US2021073791

PATIENT
  Age: 72 Year
  Sex: Male

DRUGS (1)
  1. TRELEGY ELLIPTA [Suspect]
     Active Substance: FLUTICASONE FUROATE\UMECLIDINIUM BROMIDE\VILANTEROL TRIFENATATE
     Indication: PRODUCT USED FOR UNKNOWN INDICATION
     Dosage: 100/62.5/25 MCG
     Route: 055
     Dates: start: 202102, end: 2021

REACTIONS (35)
  - Syncope [Unknown]
  - Fall [Recovered/Resolved]
  - Nausea [Unknown]
  - Dysphonia [Unknown]
  - Back pain [Unknown]
  - Influenza [Unknown]
  - Seizure [Recovered/Resolved]
  - Hypertension [Recovered/Resolved]
  - Pollakiuria [Unknown]
  - Skin haemorrhage [Recovered/Resolved]
  - Head injury [Recovered/Resolved]
  - Fatigue [Unknown]
  - Swelling [Unknown]
  - Constipation [Unknown]
  - Vomiting [Unknown]
  - Diarrhoea [Unknown]
  - Type 2 diabetes mellitus [Unknown]
  - Asthenia [Unknown]
  - Rotator cuff syndrome [Unknown]
  - Injury [Unknown]
  - Taste disorder [Unknown]
  - Dizziness [Recovered/Resolved]
  - Blood pressure decreased [Unknown]
  - Nervousness [Unknown]
  - Sexual dysfunction [Unknown]
  - Headache [Unknown]
  - Glaucoma [Unknown]
  - Prostate infection [Recovered/Resolved]
  - Oropharyngeal candidiasis [Unknown]
  - Dysuria [Unknown]
  - Loss of consciousness [Recovered/Resolved]
  - Nocturia [Unknown]
  - Chills [Unknown]
  - Cough [Unknown]
  - Arthralgia [Unknown]

NARRATIVE: CASE EVENT DATE: 202102
